FAERS Safety Report 20070943 (Version 1)
Quarter: 2021Q4

REPORT INFORMATION
  Report Type: Spontaneous
  Country: US (occurrence: US)
  Receive Date: 20211115
  Receipt Date: 20211115
  Transmission Date: 20220303
  Serious: Yes (Other)
  Sender: FDA-Public Use
  Company Number: US-OTSUKA-2021_038930

PATIENT
  Sex: Female

DRUGS (3)
  1. REXULTI [Suspect]
     Active Substance: BREXPIPRAZOLE
     Indication: Product used for unknown indication
     Dosage: 0.5 MG [0.5 MG AND 1 MG TABLET CUT IN HALF]
     Route: 065
     Dates: start: 2016, end: 2021
  2. REXULTI [Suspect]
     Active Substance: BREXPIPRAZOLE
     Dosage: 1 MG [0.5 MG AND 1 MG TABLET CUT IN HALF]
     Route: 065
     Dates: start: 2016, end: 2021
  3. FOCALIN [Concomitant]
     Active Substance: DEXMETHYLPHENIDATE HYDROCHLORIDE
     Indication: Product used for unknown indication
     Dosage: UNK
     Route: 065

REACTIONS (11)
  - Exophthalmos [Unknown]
  - Disturbance in attention [Unknown]
  - Learning disorder [Not Recovered/Not Resolved]
  - Feeling guilty [Unknown]
  - Abnormal sleep-related event [Unknown]
  - Feeling abnormal [Unknown]
  - Agitation [Unknown]
  - Bruxism [Unknown]
  - Constipation [Unknown]
  - Somnolence [Not Recovered/Not Resolved]
  - Product use issue [Unknown]

NARRATIVE: CASE EVENT DATE: 20160101
